FAERS Safety Report 17354242 (Version 1)
Quarter: 2020Q1

REPORT INFORMATION
  Report Type: Spontaneous
  Country: US (occurrence: US)
  Receive Date: 20200130
  Receipt Date: 20200130
  Transmission Date: 20200409
  Serious: No
  Sender: FDA-Public Use
  Company Number: None

PATIENT
  Age: 69 Year
  Sex: Female
  Weight: 75.15 kg

DRUGS (1)
  1. CAPECITABINE. [Suspect]
     Active Substance: CAPECITABINE
     Indication: BREAST CANCER FEMALE
     Route: 048
     Dates: start: 20191230

REACTIONS (5)
  - Constipation [None]
  - Atrial fibrillation [None]
  - Urinary tract infection [None]
  - Diarrhoea [None]
  - Malaise [None]

NARRATIVE: CASE EVENT DATE: 20200130
